FAERS Safety Report 15133442 (Version 2)
Quarter: 2019Q2

REPORT INFORMATION
  Report Type: Spontaneous
  Country: US (occurrence: US)
  Receive Date: 20180712
  Receipt Date: 20190521
  Transmission Date: 20190711
  Serious: No
  Sender: FDA-Public Use
  Company Number: US-PFIZER INC-2018280147

PATIENT
  Age: 58 Year
  Sex: Female

DRUGS (24)
  1. XELJANZ XR [Suspect]
     Active Substance: TOFACITINIB CITRATE
     Indication: RHEUMATOID ARTHRITIS
     Dosage: 11 MG, DAILY
     Route: 048
     Dates: start: 20180520
  2. ALBUTEROL CFC FREE [Concomitant]
     Indication: WHEEZING
     Dosage: 2 PUFFS DEEP BREATH EVERY 4 HOURS, AS NEEDED
     Route: 055
  3. AMIODARONE [Concomitant]
     Active Substance: AMIODARONE
     Dosage: 200 MG, DAILY
     Route: 048
  4. COREG [Concomitant]
     Active Substance: CARVEDILOL
     Dosage: 12.5 MG, 2X/DAY
     Route: 048
  5. VITAMIN D3 [Concomitant]
     Active Substance: CHOLECALCIFEROL
     Dosage: 1000 IU, DAILY
     Route: 048
  6. DIFLUCAN [Concomitant]
     Active Substance: FLUCONAZOLE
     Indication: PELVIC INFECTION
     Dosage: 150 MG, 1X/DAY
     Route: 048
  7. LOSARTAN. [Concomitant]
     Active Substance: LOSARTAN
     Dosage: 25 MG, DAILY
     Route: 048
  8. ELIQUIS [Concomitant]
     Active Substance: APIXABAN
     Dosage: 5 MG, 2X/DAY
     Route: 048
  9. PLAQUENIL SULFATE [Concomitant]
     Active Substance: HYDROXYCHLOROQUINE SULFATE
     Dosage: 400 MG, 1X/DAY(AT BEDTIME)
     Route: 048
  10. PRAVASTATIN. [Concomitant]
     Active Substance: PRAVASTATIN
     Dosage: 20 MG, DAILY
     Route: 048
  11. AEROSPAN [Concomitant]
     Active Substance: FLUNISOLIDE
     Dosage: 160 UG, 2X/DAY(160 MCG, DEEP BREATH, TWICE DAILY)
     Route: 055
  12. SINGULAIR [Concomitant]
     Active Substance: MONTELUKAST SODIUM
     Dosage: 10 MG, 1X/DAY (EVERY EVENING AT 6PM)
     Route: 048
  13. TRIAMCINOLONE ACETONIDE (GLUCOCORTICOID) [Concomitant]
     Dosage: 1 APPLICATION TOP OF THE SKIN IN ONE AREA, 2X/DAY
     Route: 061
  14. FOLIC ACID. [Concomitant]
     Active Substance: FOLIC ACID
     Dosage: 1 MG, DAILY
     Route: 048
  15. OMEPRAZOLE. [Concomitant]
     Active Substance: OMEPRAZOLE
     Dosage: 40 MG, DAILY
     Route: 048
  16. ALBUTEROL HFA [Concomitant]
     Active Substance: ALBUTEROL SULFATE
     Indication: WHEEZING
     Dosage: 3 ML, AS NEEDED (EVERY 6 HOURS, VIA DEEP BREATH)
     Route: 055
  17. FLOVENT HFA [Concomitant]
     Active Substance: FLUTICASONE PROPIONATE
     Dosage: UNK UNK, 2X/DAY ((1 PUFFS, DEEP BREATH, TWICE DAILY)
     Route: 055
  18. BACITRACIN ZINC AND POLYMYXIN B SULFATE [Concomitant]
     Active Substance: BACITRACIN ZINC\POLYMYXIN B SULFATE
     Dosage: 1 APPLICATION TOP OF THE SKIN IN ONE AREA, 4X/DAYSTARTING AT 8 AM
     Route: 061
  19. DIGITEK [Concomitant]
     Active Substance: DIGOXIN
     Dosage: 125 UG, DAILY (1 TABS, ORAL, DAILY X 30 DAY(S))
     Route: 048
  20. SULFASALAZINE. [Concomitant]
     Active Substance: SULFASALAZINE
     Dosage: 500 MG, 3X/DAY
     Route: 048
  21. CALAMINE [CALAMINE;ZINC OXIDE] [Concomitant]
     Dosage: UNK, DAILY TO FEET AT NIGHT (UNNA-FLEX ELASTIC UNNA BOOT 3 INCH TOPICAL DRESSING)
     Route: 061
  22. CLOBETASOL [Concomitant]
     Active Substance: CLOBETASOL
     Dosage: 1 APPLICATION TOP OF THE SKIN IN ONE AREA, 2X/DAY
     Route: 061
  23. METFORMIN [Concomitant]
     Active Substance: METFORMIN HYDROCHLORIDE
     Dosage: 500 MG, DAILY
     Route: 048
  24. NITROGLYCERIN. [Concomitant]
     Active Substance: NITROGLYCERIN
     Indication: CHEST PAIN
     Dosage: 0.4 MG, AS NEEDED
     Route: 060

REACTIONS (1)
  - Memory impairment [Not Recovered/Not Resolved]

NARRATIVE: CASE EVENT DATE: 2018
